FAERS Safety Report 7846453-8 (Version None)
Quarter: 2011Q4

REPORT INFORMATION
  Report Type: 
  Country: None (occurrence: None)
  Receive Date: 20111025
  Receipt Date: 20111025
  Transmission Date: 20120403
  Serious: Yes (Other)
  Sender: FDA-Public Use
  Company Number: None

PATIENT
  Sex: Male
  Weight: 86.182 kg

DRUGS (2)
  1. FLUTICASONE PROPIONATE [Concomitant]
     Indication: EOSINOPHILIC OESOPHAGITIS
     Dates: start: 20100825, end: 20110920
  2. PULMICORT [Suspect]
     Indication: EOSINOPHILIC OESOPHAGITIS
     Dates: start: 20100825, end: 20110630

REACTIONS (3)
  - DYSPHAGIA [None]
  - REACTION TO DRUG EXCIPIENTS [None]
  - THROAT IRRITATION [None]
